FAERS Safety Report 17696398 (Version 1)
Quarter: 2020Q2

REPORT INFORMATION
  Report Type: Spontaneous
  Country: US (occurrence: US)
  Receive Date: 20200423
  Receipt Date: 20200423
  Transmission Date: 20200714
  Serious: Yes (Other)
  Sender: FDA-Public Use
  Company Number: US-PURDUE PHARMA-USA-2020-0150483

PATIENT
  Sex: Male

DRUGS (13)
  1. PERCOCET                           /00446701/ [Suspect]
     Active Substance: ACETAMINOPHEN\OXYCODONE HYDROCHLORIDE\OXYCODONE TEREPHTHALATE
     Indication: BACK INJURY
     Route: 048
  2. VICODIN [Suspect]
     Active Substance: ACETAMINOPHEN\HYDROCODONE BITARTRATE
     Indication: BACK INJURY
     Route: 048
  3. TRAMADOL. [Suspect]
     Active Substance: TRAMADOL
     Indication: BACK INJURY
     Route: 048
  4. OXYCONTIN [Suspect]
     Active Substance: OXYCODONE HYDROCHLORIDE
     Indication: BACK INJURY
     Route: 048
  5. NORCO [Suspect]
     Active Substance: ACETAMINOPHEN\HYDROCODONE BITARTRATE
     Indication: BACK INJURY
     Route: 048
  6. CODEINE [Suspect]
     Active Substance: CODEINE
     Indication: BACK INJURY
     Route: 048
  7. MS CONTIN [Suspect]
     Active Substance: MORPHINE SULFATE
     Indication: BACK INJURY
     Route: 048
  8. LORTAB [Suspect]
     Active Substance: ACETAMINOPHEN\HYDROCODONE BITARTRATE
     Indication: BACK INJURY
     Route: 048
  9. OXYCODONE/ ACETAMINOPHEN TABLETS [Suspect]
     Active Substance: ACETAMINOPHEN\OXYCODONE HYDROCHLORIDE
     Indication: BACK INJURY
     Route: 048
  10. TYLENOL WITH CODEINE [Suspect]
     Active Substance: ACETAMINOPHEN\CODEINE PHOSPHATE
     Indication: BACK INJURY
     Route: 048
  11. BUPRENORPHINE TRANSDERMAL PATCH (SIMILAR TO NDA 21-306) [Suspect]
     Active Substance: BUPRENORPHINE
     Indication: BACK INJURY
     Route: 062
  12. HYDROCODONE BITARTRATE/ACETAMINOPHEN [Suspect]
     Active Substance: ACETAMINOPHEN\HYDROCODONE BITARTRATE
     Indication: BACK INJURY
     Route: 048
  13. FENTANYL CITRATE. [Suspect]
     Active Substance: FENTANYL CITRATE
     Indication: BACK INJURY
     Route: 048

REACTIONS (4)
  - Pain [Recovered/Resolved]
  - Drug ineffective [Recovered/Resolved]
  - Drug dependence [Recovered/Resolved]
  - Drug abuse [Recovered/Resolved]
